FAERS Safety Report 15311973 (Version 2)
Quarter: 2018Q4

REPORT INFORMATION
  Report Type: Report from Study
  Country: US (occurrence: US)
  Receive Date: 20180823
  Receipt Date: 20181018
  Transmission Date: 20190204
  Serious: Yes (Life-Threatening, Other)
  Sender: FDA-Public Use
  Company Number: US-ELI_LILLY_AND_COMPANY-US201808009674

PATIENT
  Age: 64 Year
  Sex: Male

DRUGS (2)
  1. IXEKIZUMAB [Suspect]
     Active Substance: IXEKIZUMAB
     Dosage: 80 MG, UNKNOWN
     Route: 058
     Dates: end: 201801
  2. IXEKIZUMAB [Suspect]
     Active Substance: IXEKIZUMAB
     Indication: PSORIASIS
     Dosage: 160 MG, SINGLE (LOADING DOSE OF 2 80 MG)
     Route: 058
     Dates: start: 20170901

REACTIONS (10)
  - Pharyngeal oedema [Recovered/Resolved]
  - Skin wrinkling [Recovered/Resolved]
  - Cardiac disorder [Recovered/Resolved]
  - Alopecia [Recovered/Resolved]
  - Skin wound [Recovered/Resolved]
  - Swelling face [Recovered/Resolved]
  - Swelling [Recovered/Resolved]
  - Ear swelling [Recovered/Resolved]
  - Exfoliative rash [Recovered/Resolved]
  - Eye swelling [Recovered/Resolved]

NARRATIVE: CASE EVENT DATE: 201709
